FAERS Safety Report 4380690-2 (Version None)
Quarter: 2004Q2

REPORT INFORMATION
  Report Type: 
  Country: None (occurrence: None)
  Receive Date: 20040614
  Receipt Date: 20040525
  Transmission Date: 20050107
  Serious: Yes (Other)
  Sender: FDA-Public Use
  Company Number: 200417991BWH

PATIENT

DRUGS (3)
  1. DTIC-DOME [Suspect]
     Indication: MALIGNANT MELANOMA STAGE IV
  2. TEMODAR [Suspect]
     Indication: MALIGNANT MELANOMA STAGE IV
  3. THALIDOMIDE [Suspect]
     Indication: MALIGNANT MELANOMA STAGE IV

REACTIONS (1)
  - DISEASE PROGRESSION [None]
